FAERS Safety Report 20190043 (Version 1)
Quarter: 2021Q4

REPORT INFORMATION
  Report Type: Spontaneous
  Country: None (occurrence: A1)
  Receive Date: 20211215
  Receipt Date: 20211215
  Transmission Date: 20220303
  Serious: Yes (Other)
  Sender: FDA-Public Use
  Company Number: A1-Acella Pharmaceuticals, LLC-2123056

PATIENT
  Age: 48 Year
  Sex: Female

DRUGS (1)
  1. GABAPENTIN [Suspect]
     Active Substance: GABAPENTIN
     Indication: Product used for unknown indication
     Route: 065

REACTIONS (8)
  - Seizure [Unknown]
  - Musculoskeletal stiffness [Unknown]
  - Gaze palsy [Unknown]
  - Myoclonus [Unknown]
  - Confusional state [Recovering/Resolving]
  - Hypertensive emergency [Unknown]
  - Fall [Unknown]
  - Toxicity to various agents [Unknown]
